FAERS Safety Report 22396062 (Version 1)
Quarter: 2023Q2

REPORT INFORMATION
  Report Type: Spontaneous
  Country: US (occurrence: US)
  Receive Date: 20230601
  Receipt Date: 20230601
  Transmission Date: 20230721
  Serious: No
  Sender: FDA-Public Use
  Company Number: US-APIL-2311401US

PATIENT
  Age: 67 Year
  Sex: Male

DRUGS (3)
  1. QULIPTA [Suspect]
     Active Substance: ATOGEPANT
     Indication: Product used for unknown indication
  2. GADOLINIUM [Concomitant]
     Active Substance: GADOLINIUM
     Indication: Product used for unknown indication
  3. VALIUM [Concomitant]
     Active Substance: DIAZEPAM
     Indication: Product used for unknown indication

REACTIONS (4)
  - Vision blurred [Unknown]
  - Head discomfort [Unknown]
  - Dizziness [Unknown]
  - Nausea [Unknown]

NARRATIVE: CASE EVENT DATE: 20230401
